FAERS Safety Report 8349804-3 (Version None)
Quarter: 2012Q2

REPORT INFORMATION
  Report Type: 
  Country: None (occurrence: None)
  Receive Date: 20120510
  Receipt Date: 20120426
  Transmission Date: 20120825
  Serious: Yes (Other)
  Sender: FDA-Public Use
  Company Number: AR-AMGEN-ARGSP2012027556

PATIENT
  Age: 26 Year
  Sex: Female

DRUGS (3)
  1. ENBREL [Suspect]
     Indication: RHEUMATOID ARTHRITIS
     Dosage: 50 MG, WEEKLY
     Dates: start: 20060105
  2. ENBREL [Suspect]
     Dosage: 25 MG, WEEKLY
     Route: 058
     Dates: start: 20060105, end: 20090401
  3. METICORTEN [Concomitant]
     Dosage: 0.5 MG, AS NEEDED
     Route: 048

REACTIONS (1)
  - HAEMORRHAGE IN PREGNANCY [None]
